FAERS Safety Report 19585656 (Version 3)
Quarter: 2021Q3

REPORT INFORMATION
  Report Type: Report from Study
  Country: US (occurrence: US)
  Receive Date: 20210720
  Receipt Date: 20210909
  Transmission Date: 20211014
  Serious: No
  Sender: FDA-Public Use
  Company Number: NVSC2021US155722

PATIENT
  Age: 49 Year
  Sex: Male

DRUGS (2)
  1. COSENTYX [Suspect]
     Active Substance: SECUKINUMAB
     Indication: PSORIATIC ARTHROPATHY
     Dosage: 300 MG, QW (Q WEEK FOR FIVE WEEKS)
     Route: 058
     Dates: start: 20210616
  2. COSENTYX [Suspect]
     Active Substance: SECUKINUMAB
     Dosage: 300 MG, Q4W
     Route: 058
     Dates: start: 20210623

REACTIONS (12)
  - Joint swelling [Unknown]
  - Inflammation [Unknown]
  - Product dose omission issue [Unknown]
  - Peripheral swelling [Unknown]
  - Arthritis [Unknown]
  - Condition aggravated [Unknown]
  - Therapeutic product effect decreased [Unknown]
  - Feeling hot [Unknown]
  - Arthralgia [Unknown]
  - Pain in extremity [Unknown]
  - Erythema [Unknown]
  - Gout [Unknown]

NARRATIVE: CASE EVENT DATE: 20210706
